FAERS Safety Report 23523521 (Version 1)
Quarter: 2024Q1

REPORT INFORMATION
  Report Type: Spontaneous
  Country: CN (occurrence: CN)
  Receive Date: 20240214
  Receipt Date: 20240214
  Transmission Date: 20240409
  Serious: Yes (Other)
  Sender: FDA-Public Use
  Company Number: CN-009507513-2402CHN003891

PATIENT
  Age: 87 Year
  Sex: Female

DRUGS (2)
  1. CILASTATIN SODIUM\IMIPENEM [Suspect]
     Active Substance: CILASTATIN SODIUM\IMIPENEM
     Indication: Sepsis
     Dosage: 1 GRAM, Q6H
     Route: 041
     Dates: start: 20231124, end: 20231129
  2. CILASTATIN SODIUM\IMIPENEM [Suspect]
     Active Substance: CILASTATIN SODIUM\IMIPENEM
     Dosage: 2 G, Q8H; FORMULATION: POWDER FOR INJECTION
     Route: 041
     Dates: start: 20231129, end: 20231211

REACTIONS (3)
  - Seizure [Recovering/Resolving]
  - Epilepsy [Recovering/Resolving]
  - Overdose [Unknown]

NARRATIVE: CASE EVENT DATE: 20231129
